FAERS Safety Report 16451776 (Version 1)
Quarter: 2019Q2

REPORT INFORMATION
  Report Type: Spontaneous
  Country: US (occurrence: US)
  Receive Date: 20190619
  Receipt Date: 20190619
  Transmission Date: 20190711
  Serious: No
  Sender: FDA-Public Use
  Company Number: US-BAYER-2019-117079

PATIENT
  Age: 74 Year
  Sex: Female
  Weight: 36.28 kg

DRUGS (3)
  1. MIRALAX [Suspect]
     Active Substance: POLYETHYLENE GLYCOL 3350
     Indication: CONSTIPATION
     Dosage: UNK
     Route: 048
  2. LAXATIVE [BISACODYL] [Concomitant]
     Active Substance: BISACODYL
  3. MIRALAX [Suspect]
     Active Substance: POLYETHYLENE GLYCOL 3350
     Indication: CONSTIPATION
     Dosage: 17 G, QD
     Route: 048
     Dates: start: 2015

REACTIONS (4)
  - Product contamination physical [None]
  - Product use in unapproved indication [None]
  - Product odour abnormal [None]
  - Weight decreased [None]

NARRATIVE: CASE EVENT DATE: 2015
